FAERS Safety Report 16378034 (Version 1)
Quarter: 2019Q2

REPORT INFORMATION
  Report Type: Spontaneous
  Country: CN (occurrence: CN)
  Receive Date: 20190531
  Receipt Date: 20190531
  Transmission Date: 20190711
  Serious: Yes (Other)
  Sender: FDA-Public Use
  Company Number: CN-PFIZER INC-2019230078

PATIENT
  Age: 48 Year
  Sex: Female
  Weight: 53 kg

DRUGS (3)
  1. NORVASC [Suspect]
     Active Substance: AMLODIPINE BESYLATE
     Dosage: 5.000 MG, 2X/DAY
     Route: 048
     Dates: start: 20190319, end: 20190523
  2. NORVASC [Suspect]
     Active Substance: AMLODIPINE BESYLATE
     Indication: HYPERTENSION
     Dosage: 5 MG, UNK
     Route: 048
  3. HYDROCHLOROTHIAZIDE. [Concomitant]
     Active Substance: HYDROCHLOROTHIAZIDE
     Dosage: 25 MG, 1X/DAY
     Route: 048

REACTIONS (6)
  - Muscle spasms [Recovering/Resolving]
  - Blood potassium abnormal [Unknown]
  - Off label use [Unknown]
  - Myalgia [Recovering/Resolving]
  - Joint range of motion decreased [Unknown]
  - Fatigue [Unknown]

NARRATIVE: CASE EVENT DATE: 20190318
